FAERS Safety Report 21943997 (Version 1)
Quarter: 2023Q1

REPORT INFORMATION
  Report Type: Spontaneous
  Country: JO (occurrence: JO)
  Receive Date: 20230202
  Receipt Date: 20230202
  Transmission Date: 20230418
  Serious: Yes (Hospitalization, Other)
  Sender: FDA-Public Use
  Company Number: JO-Nexus Pharma-000176

PATIENT
  Age: 20 Year
  Sex: Male

DRUGS (5)
  1. COLISTIMETHATE SODIUM [Suspect]
     Active Substance: COLISTIMETHATE SODIUM
     Indication: Cellulitis
     Dosage: LOADING DOSE OF 9 MILLION UNITS INFUSED OVER 90MINUTES, FOLLOWED BY A
     Route: 042
  2. MEROPENEM [Concomitant]
     Active Substance: MEROPENEM
     Indication: Cellulitis
  3. VANCOMYCIN [Concomitant]
     Active Substance: VANCOMYCIN
     Indication: Cellulitis
  4. MICAFUNGIN [Concomitant]
     Active Substance: MICAFUNGIN
     Indication: Cellulitis
  5. COLISTIMETHATE SODIUM [Suspect]
     Active Substance: COLISTIMETHATE SODIUM
     Indication: Cellulitis
     Dosage: MAINTENANCE DOSE OF 3 MILLION UNITS INFUSED OVER 60MINUTES EVERY 8HOURS.
     Route: 042

REACTIONS (4)
  - Anaphylactic reaction [Unknown]
  - Leukocytosis [Recovered/Resolved]
  - Acute kidney injury [Recovered/Resolved]
  - Blood bilirubin increased [Recovered/Resolved]
